FAERS Safety Report 5705441-8 (Version None)
Quarter: 2008Q2

REPORT INFORMATION
  Report Type: 
  Country: None (occurrence: None)
  Receive Date: 20080410
  Receipt Date: 20080331
  Transmission Date: 20081010
  Serious: Yes (Hospitalization, Other)
  Sender: FDA-Public Use
  Company Number: MK-6030961

PATIENT
  Age: 72 Year
  Sex: Female

DRUGS (8)
  1. LISINOPRIL [Suspect]
     Indication: HYPERTENSION
     Dosage: 10 MG; ORAL; DAILY
     Route: 048
  2. ATENOLOL [Suspect]
     Indication: DRUG USE FOR UNKNOWN INDICATION
  3. SPIRONOLACTONE [Suspect]
     Indication: DRUG USE FOR UNKNOWN INDICATION
     Dosage: 12.5 MG; DAILY
  4. DOXAZOSIN (DOXAZOSIN) [Suspect]
     Indication: DRUG USE FOR UNKNOWN INDICATION
  5. MOXONIDINE (MOXONIDINE) [Suspect]
     Indication: DRUG USE FOR UNKNOWN INDICATION
  6. BENDROFLUMETHIAZIDE (BENDROFLUMETHIAZIDE) [Concomitant]
  7. FELODIPINE [Concomitant]
  8. LISINOPRIL [Concomitant]

REACTIONS (6)
  - BLOOD CREATININE INCREASED [None]
  - BRONCHOSPASM [None]
  - EPISTAXIS [None]
  - HYPERKALAEMIA [None]
  - NASAL CONGESTION [None]
  - NAUSEA [None]
